FAERS Safety Report 16151460 (Version 1)
Quarter: 2019Q2

REPORT INFORMATION
  Report Type: Spontaneous
  Country: US (occurrence: US)
  Receive Date: 20190403
  Receipt Date: 20190403
  Transmission Date: 20190711
  Serious: No
  Sender: FDA-Public Use
  Company Number: US-UPSHER-SMITH LABORATORIES, LLC-2018USL00562

PATIENT
  Age: 56 Year
  Sex: Female
  Weight: 49.89 kg

DRUGS (11)
  1. MELATONIN [Concomitant]
     Active Substance: MELATONIN
  2. PREVALITE [Suspect]
     Active Substance: CHOLESTYRAMINE
     Indication: HYPERCHOLESTEROLAEMIA
     Dosage: 4 G, 4X/DAY
     Route: 048
     Dates: start: 20180917
  3. FLUTICASONE. [Concomitant]
     Active Substance: FLUTICASONE
  4. VITAMIN B12 [Concomitant]
     Active Substance: CYANOCOBALAMIN
  5. UNSPECIFIED NASAL SPRAY [Concomitant]
     Active Substance: UNSPECIFIED INGREDIENT
  6. MIRALAX [Concomitant]
     Active Substance: POLYETHYLENE GLYCOL 3350
  7. PROBIOTICS [Concomitant]
     Active Substance: PROBIOTICS NOS
  8. VITAMIN D NOS [Concomitant]
     Active Substance: VITAMIN D NOS
  9. MAGNESIUM [Concomitant]
     Active Substance: MAGNESIUM
  10. UNSPECIFIED STOOL SOFTENER [Concomitant]
  11. DIGESTIVE ENZYMES [Concomitant]
     Active Substance: UNSPECIFIED INGREDIENT

REACTIONS (1)
  - Diarrhoea [Not Recovered/Not Resolved]

NARRATIVE: CASE EVENT DATE: 20180917
